FAERS Safety Report 14332950 (Version 4)
Quarter: 2018Q1

REPORT INFORMATION
  Report Type: Spontaneous
  Country: JP (occurrence: JP)
  Receive Date: 20171228
  Receipt Date: 20180130
  Transmission Date: 20180509
  Serious: Yes (Other)
  Sender: FDA-Public Use
  Company Number: JP-ABBVIE-17K-087-2205113-00

PATIENT
  Sex: Male

DRUGS (1)
  1. HUMIRA [Suspect]
     Active Substance: ADALIMUMAB
     Indication: PRODUCT USED FOR UNKNOWN INDICATION
     Route: 058

REACTIONS (4)
  - Interleukin-2 receptor increased [Recovering/Resolving]
  - Drug reaction with eosinophilia and systemic symptoms [Unknown]
  - Blood lactate dehydrogenase increased [Recovering/Resolving]
  - Serum ferritin increased [Recovering/Resolving]
